FAERS Safety Report 15518037 (Version 2)
Quarter: 2018Q4

REPORT INFORMATION
  Report Type: Spontaneous
  Country: DE (occurrence: DE)
  Receive Date: 20181017
  Receipt Date: 20181217
  Transmission Date: 20190205
  Serious: Yes (Other)
  Sender: FDA-Public Use
  Company Number: DE-BAYER-2018-191996

PATIENT
  Age: 81 Year
  Sex: Male
  Weight: 66 kg

DRUGS (2)
  1. GADOVIST [Suspect]
     Active Substance: GADOBUTROL
     Indication: NUCLEAR MAGNETIC RESONANCE IMAGING ABDOMINAL
     Dosage: 16 ML, ONCE
     Route: 042
     Dates: start: 20180711, end: 20180711
  2. GADOVIST [Suspect]
     Active Substance: GADOBUTROL
     Indication: NUCLEAR MAGNETIC RESONANCE IMAGING HEART

REACTIONS (25)
  - Neck pain [None]
  - Diarrhoea [None]
  - Skin disorder [None]
  - Fatigue [None]
  - Syncope [None]
  - Discomfort [None]
  - Gingival bleeding [None]
  - Erectile dysfunction [None]
  - Hypopnoea [None]
  - Arrhythmia [None]
  - Testicular pain [None]
  - Heart rate decreased [None]
  - Rhinorrhoea [None]
  - Contrast media deposition [None]
  - Chest pain [None]
  - Skin burning sensation [None]
  - Contrast media allergy [None]
  - Myalgia [None]
  - Visual acuity reduced [None]
  - Pruritus generalised [None]
  - Nontherapeutic agent urine positive [None]
  - Diplopia [None]
  - Contrast media toxicity [None]
  - Nontherapeutic agent blood positive [None]
  - Headache [None]
